FAERS Safety Report 8494931-3 (Version None)
Quarter: 2012Q3

REPORT INFORMATION
  Report Type: 
  Country: None (occurrence: None)
  Receive Date: 20120709
  Receipt Date: 20120704
  Transmission Date: 20120928
  Serious: Yes (Other)
  Sender: FDA-Public Use
  Company Number: US-PFIZER INC-2012160184

PATIENT
  Sex: Female

DRUGS (3)
  1. METHOTREXATE SODIUM [Suspect]
     Dosage: UNK
  2. ENBREL [Suspect]
     Indication: RHEUMATOID ARTHRITIS
     Dosage: 50 MG, QWK
     Dates: start: 20110618, end: 20120501
  3. LEUCOVORIN CALCIUM [Suspect]
     Dosage: UNK

REACTIONS (7)
  - STAPHYLOCOCCAL INFECTION [None]
  - HYPOACUSIS [None]
  - IMMUNODEFICIENCY [None]
  - HEADACHE [None]
  - ALOPECIA [None]
  - DRUG INEFFECTIVE [None]
  - HYPERSENSITIVITY [None]
